FAERS Safety Report 13777243 (Version 6)
Quarter: 2018Q1

REPORT INFORMATION
  Report Type: Spontaneous
  Country: IT (occurrence: IT)
  Receive Date: 20170720
  Receipt Date: 20180131
  Transmission Date: 20180508
  Serious: Yes (Hospitalization, Other)
  Sender: FDA-Public Use
  Company Number: IT-MYLANLABS-2017M1044539

PATIENT
  Age: 42 Year
  Sex: Female

DRUGS (8)
  1. SERTRALINE [Suspect]
     Active Substance: SERTRALINE HYDROCHLORIDE
     Indication: BORDERLINE PERSONALITY DISORDER
  2. SERTRALINE [Suspect]
     Active Substance: SERTRALINE HYDROCHLORIDE
     Indication: SCHIZOPHRENIA
     Dosage: 100 MG, QD
     Dates: start: 20150801
  3. ZUCLOPENTHIXOL [Concomitant]
     Active Substance: ZUCLOPENTHIXOL
     Indication: BORDERLINE PERSONALITY DISORDER
     Dosage: UNK
     Dates: start: 2016
  4. CLOZAPINE. [Suspect]
     Active Substance: CLOZAPINE
     Indication: BORDERLINE PERSONALITY DISORDER
  5. CLOZAPINE. [Suspect]
     Active Substance: CLOZAPINE
     Indication: SCHIZOPHRENIA
     Dosage: 400 MG, QD
     Route: 048
     Dates: start: 20070101, end: 2016
  6. VALPROIC ACID. [Interacting]
     Active Substance: VALPROIC ACID
     Indication: BORDERLINE PERSONALITY DISORDER
     Dosage: 800 MG, QD
     Dates: start: 20150801
  7. VALPROIC ACID. [Interacting]
     Active Substance: VALPROIC ACID
     Indication: SCHIZOPHRENIA
  8. ZUCLOPENTHIXOL [Concomitant]
     Active Substance: ZUCLOPENTHIXOL
     Indication: SCHIZOPHRENIA
     Dosage: 20 MG, QD

REACTIONS (19)
  - Cardiomegaly [Unknown]
  - Monocytosis [Recovered/Resolved]
  - Red blood cell sedimentation rate increased [Recovered/Resolved]
  - Serositis [Recovered/Resolved]
  - Neutrophilia [Recovered/Resolved]
  - Drug interaction [Unknown]
  - Pleurisy [Recovered/Resolved]
  - Pyrexia [Recovered/Resolved]
  - Pericardial effusion [Recovered/Resolved]
  - Respiratory alkalosis [Unknown]
  - Pericarditis [Recovered/Resolved]
  - Chest pain [Recovered/Resolved]
  - Pleural effusion [Unknown]
  - Oedema peripheral [Recovered/Resolved]
  - Antinuclear antibody positive [Unknown]
  - Leukocytosis [Recovered/Resolved]
  - Product use in unapproved indication [Unknown]
  - Hypoalbuminaemia [Recovered/Resolved]
  - Proteinuria [Recovered/Resolved]

NARRATIVE: CASE EVENT DATE: 20150801
